FAERS Safety Report 6286053-7 (Version None)
Quarter: 2009Q3

REPORT INFORMATION
  Report Type: 
  Country: None (occurrence: None)
  Receive Date: 20090728
  Receipt Date: 20090723
  Transmission Date: 20100115
  Serious: Yes (Other)
  Sender: FDA-Public Use
  Company Number: DK-ALLERGAN-0905232US

PATIENT
  Age: 82 Year
  Sex: Female
  Weight: 77 kg

DRUGS (5)
  1. LUMIGAN [Suspect]
     Indication: GLAUCOMA
     Dosage: 1 GTT, QD
     Route: 047
     Dates: start: 20090115, end: 20090313
  2. ATACAND [Concomitant]
     Indication: BLOOD PRESSURE
     Dosage: 8 MG, UNK
     Route: 048
     Dates: start: 20020101
  3. LASIX [Concomitant]
     Indication: BLOOD PRESSURE
     Dosage: 40 MG, UNK
     Route: 048
     Dates: start: 20020101
  4. POTASSIUM CHLORIDE [Concomitant]
     Indication: ELECTROLYTE IMBALANCE
     Dosage: 750 MG, QD
     Route: 048
     Dates: start: 20020101
  5. MAGNYL (ASPIRIN) [Concomitant]
     Indication: ANTICOAGULANT THERAPY
     Dosage: 75 MG, QD
     Route: 048
     Dates: start: 19970101

REACTIONS (6)
  - AMNESIA [None]
  - ECZEMA [None]
  - HEADACHE [None]
  - NIGHTMARE [None]
  - PARAESTHESIA [None]
  - RASH [None]
